FAERS Safety Report 9992563 (Version 1)
Quarter: 2014Q1

REPORT INFORMATION
  Report Type: Spontaneous
  Country: IT (occurrence: IT)
  Receive Date: 20140310
  Receipt Date: 20140310
  Transmission Date: 20141002
  Serious: Yes (Hospitalization)
  Sender: FDA-Public Use
  Company Number: PHHY2014IT027496

PATIENT
  Sex: Female

DRUGS (4)
  1. TEGRETOL [Suspect]
     Indication: PARTIAL SEIZURES
     Dosage: 800 MG, DAILY
     Route: 048
     Dates: start: 20140210, end: 20140214
  2. TEGRETOL [Suspect]
     Dosage: 800 MG, DAILY
     Route: 048
  3. DEURSIL [Concomitant]
     Dosage: UNK UKN, UNK
  4. PEPTAZOL [Concomitant]
     Dosage: UNK UKN, UNK

REACTIONS (4)
  - Lethargy [Recovering/Resolving]
  - Swelling face [Recovering/Resolving]
  - Hallucination [Recovering/Resolving]
  - Vomiting [Recovering/Resolving]
